FAERS Safety Report 21418988 (Version 1)
Quarter: 2022Q4

REPORT INFORMATION
  Report Type: Spontaneous
  Country: FR (occurrence: FR)
  Receive Date: 20221006
  Receipt Date: 20221006
  Transmission Date: 20230113
  Serious: Yes (Hospitalization)
  Sender: FDA-Public Use
  Company Number: None

PATIENT
  Age: 92 Year
  Sex: Female
  Weight: 80.6 kg

DRUGS (17)
  1. JANUVIA [Suspect]
     Active Substance: SITAGLIPTIN PHOSPHATE
     Indication: Diabetes mellitus management
     Dosage: A TAB OF 50MG, IN THE MORNING.
     Route: 048
     Dates: start: 20211208, end: 20211211
  2. AUGMENTIN [Suspect]
     Active Substance: AMOXICILLIN\CLAVULANATE POTASSIUM
     Indication: Pneumonia
     Dosage: 3 SACHETS PER DAY (1-1-1)
     Route: 048
     Dates: start: 20211211, end: 20211211
  3. PANTOPRAZOLE [Concomitant]
     Active Substance: PANTOPRAZOLE
     Dosage: 1 TAB OF 20 MG, IN THE EVENING.
     Route: 048
  4. POTASSIUM CHLORIDE [Concomitant]
     Active Substance: POTASSIUM CHLORIDE
     Dosage: UNK
     Route: 048
     Dates: start: 20211206, end: 20211212
  5. ACETAMINOPHEN [Concomitant]
     Active Substance: ACETAMINOPHEN
     Dosage: 2 CAPSULES OF 500MG, THREE TIMES A DAY.
     Route: 048
     Dates: start: 20211209, end: 20211216
  6. OSELTAMIVIR PHOSPHATE [Concomitant]
     Active Substance: OSELTAMIVIR PHOSPHATE
     Dosage: UNK
     Route: 048
     Dates: start: 20211201, end: 20211205
  7. CEFTRIAXONE SODIUM [Concomitant]
     Active Substance: CEFTRIAXONE SODIUM
     Dosage: UNK
     Route: 058
     Dates: start: 20211129, end: 20211130
  8. TAMSULOSIN HYDROCHLORIDE [Concomitant]
     Active Substance: TAMSULOSIN HYDROCHLORIDE
     Dosage: 0.4 MILLIGRAM, QD
     Dates: start: 20211201, end: 20211214
  9. ACTIVATED CHARCOAL\SACCHAROMYCES CEREVISIAE [Concomitant]
     Active Substance: ACTIVATED CHARCOAL\SACCHAROMYCES CEREVISIAE
     Dosage: 1 - 1 - 1
     Dates: start: 20211204
  10. METFORMIN [Concomitant]
     Active Substance: METFORMIN HYDROCHLORIDE
     Dosage: 500MG IN THE MORNING, 500MG IN THE EVENING
     Route: 048
     Dates: end: 20211213
  11. HUMALOG [Concomitant]
     Active Substance: INSULIN LISPRO
     Dosage: UNK
     Route: 058
     Dates: start: 20211126, end: 20211209
  12. SMECTA [Concomitant]
     Active Substance: MONTMORILLONITE
     Dosage: ORANGE VANILLA (IN SINGLE DOSE SACHET)
     Dates: start: 20211210, end: 20211214
  13. FOLIC ACID [Concomitant]
     Active Substance: FOLIC ACID
     Dosage: 1 TAB OF 5MG IN THE MORNING.
     Route: 048
  14. FLAGYL [Concomitant]
     Active Substance: METRONIDAZOLE\METRONIDAZOLE HYDROCHLORIDE
     Dosage: UNK
     Route: 048
     Dates: start: 20211129, end: 20211130
  15. NEBIVOLOL [Concomitant]
     Active Substance: NEBIVOLOL
     Dosage: 0.5 TAB OF 5MG, IN THE MORNING.
     Route: 048
  16. RACECADOTRIL [Concomitant]
     Active Substance: RACECADOTRIL
     Dosage: 100 MG, THREE TIMES A DAY.
     Route: 048
     Dates: start: 20211204, end: 20211210
  17. LOVENOX [Concomitant]
     Active Substance: ENOXAPARIN SODIUM
     Dosage: 1 INJECTION, IN THE EVENING (4000 UI ANTI-XA/0.4 ML, IN PRE-FILLED SYRINGE)
     Route: 058

REACTIONS (1)
  - Toxic skin eruption [Recovered/Resolved]

NARRATIVE: CASE EVENT DATE: 20211211
